FAERS Safety Report 23243822 (Version 1)
Quarter: 2023Q4

REPORT INFORMATION
  Report Type: Spontaneous
  Country: PR (occurrence: PR)
  Receive Date: 20231130
  Receipt Date: 20231130
  Transmission Date: 20240110
  Serious: No
  Sender: FDA-Public Use
  Company Number: PR-BRISTOL-MYERS SQUIBB COMPANY-2023-172210

PATIENT
  Age: 71 Year
  Sex: Female
  Weight: 68.49 kg

DRUGS (1)
  1. REVLIMID [Suspect]
     Active Substance: LENALIDOMIDE
     Indication: Plasma cell myeloma
     Route: 048
     Dates: start: 20231119

REACTIONS (3)
  - Pruritus [Unknown]
  - Pyrexia [Unknown]
  - Diarrhoea [Unknown]
